FAERS Safety Report 19968095 (Version 1)
Quarter: 2021Q4

REPORT INFORMATION
  Report Type: Spontaneous
  Country: US (occurrence: US)
  Receive Date: 20211015
  Receipt Date: 20211015
  Transmission Date: 20220303
  Serious: No
  Sender: FDA-Public Use
  Company Number: None

PATIENT
  Age: 60 Year
  Sex: Male

DRUGS (1)
  1. AFINITOR [Suspect]
     Active Substance: EVEROLIMUS
     Route: 048
     Dates: start: 202107

REACTIONS (3)
  - Dyspnoea [None]
  - Vocal cord dysfunction [None]
  - Tumour compression [None]

NARRATIVE: CASE EVENT DATE: 20211006
